APPROVED DRUG PRODUCT: LIDOCAINE HYDROCHLORIDE 0.8% AND DEXTROSE 5% IN PLASTIC CONTAINER
Active Ingredient: LIDOCAINE HYDROCHLORIDE
Strength: 800MG/100ML
Dosage Form/Route: INJECTABLE;INJECTION
Application: N018461 | Product #004 | TE Code: AP
Applicant: BAXTER HEALTHCARE CORP
Approved: Feb 22, 1982 | RLD: No | RS: No | Type: RX